FAERS Safety Report 10607392 (Version 1)
Quarter: 2014Q4

REPORT INFORMATION
  Report Type: Spontaneous
  Country: GB (occurrence: GB)
  Receive Date: 20141125
  Receipt Date: 20141125
  Transmission Date: 20150529
  Serious: Yes (Other)
  Sender: FDA-Public Use
  Company Number: GB-PFIZER INC-2014317868

PATIENT
  Age: 77 Year
  Sex: Male

DRUGS (8)
  1. DOXYCYCLINE MONOHYDRATE [Suspect]
     Active Substance: DOXYCYCLINE
     Indication: ORCHITIS
     Dosage: 100 MG, 2X/DAY
     Route: 048
     Dates: start: 20141106
  2. PARACETAMOL [Concomitant]
     Active Substance: ACETAMINOPHEN
     Dosage: 1 G, 4X/DAY
     Route: 048
     Dates: start: 20141106
  3. SIMVASTATIN. [Concomitant]
     Active Substance: SIMVASTATIN
     Dosage: 40 MG, 1X/DAY EVERY EVENING
     Route: 065
  4. CIPROFLOXACIN. [Suspect]
     Active Substance: CIPROFLOXACIN
     Indication: ORCHITIS
     Dosage: 500 MG, 2X/DAY
     Route: 048
     Dates: start: 20141106
  5. ENOXAPARIN SODIUM. [Concomitant]
     Active Substance: ENOXAPARIN SODIUM
     Dosage: EVERY EVENING
     Route: 058
  6. FERROUS FUMARATE [Concomitant]
     Active Substance: FERROUS FUMARATE
     Dosage: 210 MG, 3X/DAY
     Route: 048
  7. IVABRADINE [Concomitant]
     Active Substance: IVABRADINE
     Dosage: 2.5 MG, 2X/DAY
     Route: 048
  8. OMEPRAZOLE. [Concomitant]
     Active Substance: OMEPRAZOLE
     Dosage: 20 MG, 1X/DAY EVERY MORNING
     Route: 048

REACTIONS (9)
  - Feeling hot [Unknown]
  - Arthralgia [Unknown]
  - Inflammation [Unknown]
  - Tendon injury [Unknown]
  - Erythema [Unknown]
  - Joint stiffness [Unknown]
  - Peripheral swelling [Unknown]
  - Pruritus [Unknown]
  - Pain in extremity [Unknown]

NARRATIVE: CASE EVENT DATE: 20141110
